FAERS Safety Report 6061404-7 (Version None)
Quarter: 2009Q1

REPORT INFORMATION
  Report Type: 
  Country: None (occurrence: None)
  Receive Date: 20090129
  Receipt Date: 20090129
  Transmission Date: 20090719
  Serious: No
  Sender: FDA-Public Use
  Company Number: None

PATIENT
  Sex: Female
  Weight: 79.8331 kg

DRUGS (2)
  1. NUVARING [Suspect]
     Indication: CONTRACEPTION
     Dosage: 1 RING 1 X MONTH VAG
     Route: 067
     Dates: start: 20060101, end: 20081205
  2. NUVARING [Suspect]
     Indication: MENSTRUATION IRREGULAR
     Dosage: 1 RING 1 X MONTH VAG
     Route: 067
     Dates: start: 20060101, end: 20081205

REACTIONS (10)
  - ACNE CYSTIC [None]
  - DEPRESSION [None]
  - FAMILY STRESS [None]
  - HEADACHE [None]
  - IRRITABILITY [None]
  - LOSS OF LIBIDO [None]
  - MUSCLE SPASMS [None]
  - NO THERAPEUTIC RESPONSE [None]
  - PAIN [None]
  - WEIGHT INCREASED [None]
